FAERS Safety Report 7025695-8 (Version None)
Quarter: 2010Q4

REPORT INFORMATION
  Report Type: 
  Country: None (occurrence: None)
  Receive Date: 20101004
  Receipt Date: 20100923
  Transmission Date: 20110411
  Serious: Yes (Other)
  Sender: FDA-Public Use
  Company Number: FR-BIOGENIDEC-2010BI026681

PATIENT
  Age: 44 Year
  Sex: Female

DRUGS (8)
  1. TYSABRI [Suspect]
     Indication: RELAPSING-REMITTING MULTIPLE SCLEROSIS
     Route: 042
     Dates: start: 20080201, end: 20100121
  2. TYSABRI [Suspect]
     Route: 042
     Dates: start: 20100701
  3. ANTIDEPRESSANT [Concomitant]
  4. HYPNOTIC [Concomitant]
  5. GUTRON [Concomitant]
  6. TARDYFERON [Concomitant]
  7. MANTADIX [Concomitant]
  8. COPAXONE [Concomitant]
     Indication: RELAPSING-REMITTING MULTIPLE SCLEROSIS
     Dates: start: 20100301, end: 20100630

REACTIONS (2)
  - MULTIPLE SCLEROSIS RELAPSE [None]
  - REBOUND EFFECT [None]
